FAERS Safety Report 5903083-2 (Version None)
Quarter: 2008Q3

REPORT INFORMATION
  Report Type: 
  Country: None (occurrence: None)
  Receive Date: 20080930
  Receipt Date: 20080922
  Transmission Date: 20090109
  Serious: No
  Sender: FDA-Public Use
  Company Number: TH-ROCHE-587451

PATIENT
  Age: 29 Year
  Sex: Female

DRUGS (1)
  1. ROACCUTANE [Suspect]
     Indication: ACNE
     Route: 065
     Dates: start: 20080501

REACTIONS (2)
  - NO ADVERSE EVENT [None]
  - PREGNANCY [None]
